FAERS Safety Report 7345624-7 (Version None)
Quarter: 2011Q1

REPORT INFORMATION
  Report Type: 
  Country: None (occurrence: None)
  Receive Date: 20110310
  Receipt Date: 20110304
  Transmission Date: 20110831
  Serious: Yes (Hospitalization)
  Sender: FDA-Public Use
  Company Number: A0913825A

PATIENT
  Age: 37 Year
  Sex: Female

DRUGS (2)
  1. METFORMIN [Concomitant]
  2. AVANDIA [Suspect]
     Dosage: 4MG TWICE PER DAY
     Route: 048
     Dates: start: 20040101, end: 20070901

REACTIONS (5)
  - CARDIAC FAILURE CONGESTIVE [None]
  - RENAL FAILURE [None]
  - CARDIAC FAILURE [None]
  - ANAEMIA [None]
  - BLINDNESS [None]
